FAERS Safety Report 12243704 (Version 2)
Quarter: 2016Q3

REPORT INFORMATION
  Report Type: Spontaneous
  Country: US (occurrence: US)
  Receive Date: 20160406
  Receipt Date: 20160707
  Transmission Date: 20161109
  Serious: No
  Sender: FDA-Public Use
  Company Number: US-ACTELION PHARMACEUTICALS US, INC.-A-US2014-106463

PATIENT
  Age: 74 Year
  Sex: Male

DRUGS (3)
  1. PREDNISONE. [Concomitant]
     Active Substance: PREDNISONE
     Dosage: 5 MG, QD
     Dates: start: 198901
  2. OPSUMIT [Suspect]
     Active Substance: MACITENTAN
     Indication: PULMONARY ARTERIAL HYPERTENSION
     Dosage: 10 MG, QD
     Route: 048
     Dates: start: 2013
  3. METHOTREXATE. [Concomitant]
     Active Substance: METHOTREXATE
     Dosage: 12.2 MG, UNK

REACTIONS (6)
  - Gastrooesophageal reflux disease [Unknown]
  - Influenza [Not Recovered/Not Resolved]
  - Oesophageal irritation [Unknown]
  - Cough [Recovering/Resolving]
  - Chills [Not Recovered/Not Resolved]
  - Throat irritation [Recovering/Resolving]

NARRATIVE: CASE EVENT DATE: 20160613
